FAERS Safety Report 14851466 (Version 2)
Quarter: 2018Q4

REPORT INFORMATION
  Report Type: Spontaneous
  Country: FR (occurrence: FR)
  Receive Date: 20180507
  Receipt Date: 20181023
  Transmission Date: 20190204
  Serious: Yes (Other)
  Sender: FDA-Public Use
  Company Number: FR-MERCK KGAA-2047266

PATIENT
  Age: 54 Year
  Sex: Female
  Weight: 64 kg

DRUGS (1)
  1. EUTHYROX [Suspect]
     Active Substance: LEVOTHYROXINE SODIUM
     Indication: PRODUCT USED FOR UNKNOWN INDICATION

REACTIONS (24)
  - Asocial behaviour [None]
  - Asthenia [None]
  - Anxiety [Recovered/Resolved]
  - Irritability [Recovered/Resolved]
  - Gastritis [None]
  - Myalgia [None]
  - Flushing [Recovered/Resolved]
  - Tension [None]
  - Pelvic pain [None]
  - Muscle spasms [None]
  - Hyperhidrosis [None]
  - Gastrointestinal motility disorder [None]
  - Tendon pain [None]
  - Loss of personal independence in daily activities [None]
  - Blood thyroid stimulating hormone increased [None]
  - Dizziness [None]
  - Depression [None]
  - Impaired quality of life [None]
  - Insomnia [None]
  - Fatigue [None]
  - Pain [None]
  - Aggression [None]
  - Abdominal pain [None]
  - Headache [None]

NARRATIVE: CASE EVENT DATE: 201704
